FAERS Safety Report 25797537 (Version 1)
Quarter: 2025Q3

REPORT INFORMATION
  Report Type: Spontaneous
  Country: GB (occurrence: GB)
  Receive Date: 20250912
  Receipt Date: 20250912
  Transmission Date: 20251021
  Serious: Yes (Other)
  Sender: CHATTEM
  Company Number: None

PATIENT

DRUGS (1)
  1. FEXOFENADINE HYDROCHLORIDE [Suspect]
     Active Substance: FEXOFENADINE HYDROCHLORIDE
     Indication: Product used for unknown indication
     Dosage: ... TAKEN ONLY HALF A TABLET EVERY EVENING...
     Route: 065

REACTIONS (6)
  - Heart rate irregular [Unknown]
  - Diarrhoea [Unknown]
  - Heart rate increased [Unknown]
  - Nausea [Unknown]
  - Nightmare [Unknown]
  - Nightmare [Unknown]
